FAERS Safety Report 24202383 (Version 1)
Quarter: 2024Q3

REPORT INFORMATION
  Report Type: Report from Study
  Country: US (occurrence: US)
  Receive Date: 20240813
  Receipt Date: 20240813
  Transmission Date: 20241017
  Serious: Yes (Death, Hospitalization)
  Sender: ABBVIE
  Company Number: US-ABBVIE-5811758

PATIENT
  Sex: Male

DRUGS (1)
  1. RINVOQ [Suspect]
     Active Substance: UPADACITINIB
     Indication: Colitis ulcerative
     Route: 048
     Dates: start: 20240406, end: 20240608

REACTIONS (3)
  - Pneumonia [Fatal]
  - Interstitial lung disease [Fatal]
  - Fibrosis [Fatal]

NARRATIVE: CASE EVENT DATE: 20240101
